FAERS Safety Report 11672929 (Version 12)
Quarter: 2017Q3

REPORT INFORMATION
  Report Type: Report from Study
  Country: GB (occurrence: GB)
  Receive Date: 20151028
  Receipt Date: 20170726
  Transmission Date: 20171127
  Serious: Yes (Life-Threatening, Hospitalization, Disabling)
  Sender: FDA-Public Use
  Company Number: GB-ACCORD-034832

PATIENT
  Age: 43 Year
  Sex: Female
  Weight: 107 kg

DRUGS (17)
  1. C0-CODAMOL [Concomitant]
     Dosage: 30/500 MG
     Dates: start: 20150706, end: 20160330
  2. CODEINE [Concomitant]
     Active Substance: CODEINE
     Dates: start: 20150706, end: 20160330
  3. DIFFLAM [Concomitant]
     Active Substance: BENZYDAMINE HYDROCHLORIDE
     Indication: PROPHYLAXIS
     Dates: start: 20150806, end: 20160330
  4. LOPERAMIDE [Concomitant]
     Active Substance: LOPERAMIDE
     Indication: DIARRHOEA
     Dates: start: 20150806, end: 20160330
  5. OXYNORM [Concomitant]
     Active Substance: OXYCODONE HYDROCHLORIDE
     Indication: ANALGESIC THERAPY
     Dates: start: 20150916, end: 20150918
  6. ZOPICLONE [Concomitant]
     Active Substance: ZOPICLONE
     Indication: PROPHYLAXIS
     Dates: start: 20150706, end: 20160330
  7. DOMPERIDONE [Concomitant]
     Active Substance: DOMPERIDONE
     Indication: PROPHYLAXIS
     Dates: start: 20150806, end: 20160330
  8. LANSOPRAZOLE. [Concomitant]
     Active Substance: LANSOPRAZOLE
     Indication: PROPHYLAXIS
     Dates: start: 20150706, end: 20160330
  9. ORAMORPH [Concomitant]
     Active Substance: MORPHINE SULFATE
     Dates: start: 20150706, end: 20160330
  10. GAVISCON [Concomitant]
     Active Substance: ALUMINUM HYDROXIDE\MAGNESIUM CARBONATE
     Indication: NAUSEA
     Dates: start: 20150917, end: 20150918
  11. AVASTIN [Suspect]
     Active Substance: BEVACIZUMAB
     Indication: COLORECTAL CANCER METASTATIC
     Dosage: MOST RECENT DOSE 1350 MG PRIOR TO SAE- 20-AUG-2015
     Route: 042
     Dates: start: 20150806
  12. SENNA ALEXANDRINA [Concomitant]
     Active Substance: SENNA LEAF
     Dates: start: 20150706, end: 20160330
  13. XELODA [Suspect]
     Active Substance: CAPECITABINE
     Indication: COLORECTAL CANCER METASTATIC
     Dosage: LAST DOSE PRIOR TO SAE- 20-AUG-2015
     Route: 042
  14. FLUOROURACIL. [Suspect]
     Active Substance: FLUOROURACIL
     Indication: COLORECTAL CANCER METASTATIC
     Dosage: LAST DOSE PRIOR TO SAE- 20-AUG-2015
     Route: 042
     Dates: start: 20150806
  15. OXALIPLATIN. [Suspect]
     Active Substance: OXALIPLATIN
     Indication: COLORECTAL CANCER METASTATIC
     Dosage: LAST DOSE PRIOR TO SAE- 20-AUG-2015 AT 15.00
     Route: 042
     Dates: start: 20150806
  16. FOLINIC ACID [Suspect]
     Active Substance: LEUCOVORIN
     Indication: COLORECTAL CANCER METASTATIC
     Dosage: MOST RECENT DOSE PRIOR TO SAE- 20-AUG-2015
     Route: 042
     Dates: start: 20150806
  17. TAZOCIN [Concomitant]
     Active Substance: PIPERACILLIN SODIUM\TAZOBACTAM SODIUM
     Indication: PROPHYLAXIS
     Dates: start: 20150824, end: 20150824

REACTIONS (2)
  - Anaemia [Recovered/Resolved]
  - Intestinal perforation [Recovered/Resolved]

NARRATIVE: CASE EVENT DATE: 20150828
